FAERS Safety Report 12903381 (Version 1)
Quarter: 2016Q4

REPORT INFORMATION
  Report Type: Spontaneous
  Country: US (occurrence: US)
  Receive Date: 20161102
  Receipt Date: 20161102
  Transmission Date: 20170207
  Serious: No
  Sender: FDA-Public Use
  Company Number: US-BAUSCH-BL-2015-029917

PATIENT
  Age: 62 Year
  Sex: Female

DRUGS (2)
  1. PROLENSA [Concomitant]
     Active Substance: BROMFENAC SODIUM
     Indication: POSTOPERATIVE CARE
     Route: 061
     Dates: start: 20151207, end: 20151209
  2. BEPREVE [Suspect]
     Active Substance: BEPOTASTINE BESILATE
     Indication: EYE ALLERGY
     Route: 061
     Dates: start: 20151207

REACTIONS (4)
  - Hot flush [Recovered/Resolved]
  - Rash [Recovered/Resolved]
  - Pruritus [Recovered/Resolved]
  - Urticaria [Recovered/Resolved]

NARRATIVE: CASE EVENT DATE: 20151209
